FAERS Safety Report 6924052-X (Version None)
Quarter: 2010Q3

REPORT INFORMATION
  Report Type: 
  Country: None (occurrence: None)
  Receive Date: 20100813
  Receipt Date: 20100804
  Transmission Date: 20110219
  Serious: Yes (Other)
  Sender: FDA-Public Use
  Company Number: US-AMGEN-QUU415926

PATIENT

DRUGS (2)
  1. ENBREL [Suspect]
     Route: 064
     Dates: start: 20030912, end: 20090101
  2. PRENATAL VITAMINS [Concomitant]
     Route: 064

REACTIONS (2)
  - POSTMATURE BABY [None]
  - PYREXIA [None]
